FAERS Safety Report 8000440-8 (Version None)
Quarter: 2011Q4

REPORT INFORMATION
  Report Type: 
  Country: None (occurrence: None)
  Receive Date: 20111222
  Receipt Date: 20110512
  Transmission Date: 20120403
  Serious: No
  Sender: FDA-Public Use
  Company Number: US-BRISTOL-MYERS SQUIBB COMPANY-15741374

PATIENT
  Sex: Male

DRUGS (1)
  1. PRAVACHOL [Suspect]

REACTIONS (1)
  - DRUG TOLERANCE DECREASED [None]
